FAERS Safety Report 7432861-6 (Version None)
Quarter: 2011Q2

REPORT INFORMATION
  Report Type: 
  Country: None (occurrence: None)
  Receive Date: 20110401
  Receipt Date: 20110406
  Transmission Date: 20111010
  Serious: Yes (Hospitalization, Other)
  Sender: FDA-Public Use
  Company Number: ACO_23056_2011

PATIENT
  Age: 42 Year
  Sex: Female

DRUGS (19)
  1. TIZANIDINE HCL [Concomitant]
  2. FUROSEMIDE (FUROSEMIDE) [Concomitant]
  3. AMPYRA [Suspect]
     Indication: PRODUCT USED FOR UNKNOWN INDICATION
     Dosage: 10 MG, BID
     Dates: start: 20100625
  4. DANTROLENE SODIUM [Concomitant]
  5. POTASSIUM (POTASSIUM) [Concomitant]
  6. CYANOCOBALAMIN (CYANOCOBALMIN) [Concomitant]
  7. REMERON [Concomitant]
  8. CYMBALTA [Suspect]
     Indication: PRODUCT USED FOR UNKNOWN INDICATION
     Dates: end: 20110101
  9. WELLBUTRIN [Concomitant]
  10. BACTRIM [Concomitant]
  11. ZANAFLEX [Suspect]
     Indication: PRODUCT USED FOR UNKNOWN INDICATION
  12. OXYBUTYNIN [Concomitant]
  13. IMIPRAMINE [Concomitant]
  14. VITAMIN D /001078901/ (ERGOCALCIFEROL) [Concomitant]
  15. BACLOFEN [Concomitant]
  16. SIMVASTATIN [Concomitant]
  17. TERAZOSIN HCL [Concomitant]
  18. CYCLESSA [Concomitant]
  19. TYENOL PM (DIPHENHYDRAMINE HYDROCHLORIDE, PARACEMATOL) [Concomitant]

REACTIONS (10)
  - CONVULSION [None]
  - CLOSTRIDIAL INFECTION [None]
  - WEIGHT DECREASED [None]
  - URINARY TRACT INFECTION [None]
  - OEDEMA [None]
  - NAUSEA [None]
  - MULTIPLE SCLEROSIS RELAPSE [None]
  - VOMITING [None]
  - RENAL FAILURE [None]
  - SEPSIS [None]
